FAERS Safety Report 5442487-1 (Version None)
Quarter: 2007Q3

REPORT INFORMATION
  Report Type: 
  Country: None (occurrence: None)
  Receive Date: 20070829
  Receipt Date: 20070806
  Transmission Date: 20080115
  Serious: Yes (Hospitalization)
  Sender: FDA-Public Use
  Company Number: DIILG-07-0682

PATIENT
  Age: 72 Year
  Sex: Female

DRUGS (9)
  1. DIPRIVAN [Suspect]
     Indication: ANAESTHESIA
     Dosage: (ONCE)
     Dates: start: 20070525, end: 20070525
  2. FLOVENT [Concomitant]
  3. VITAMIN B12 [Concomitant]
  4. NOVALOG INSULIN [Concomitant]
  5. PREMARIN [Concomitant]
  6. PRILOSEC [Concomitant]
  7. VERAPAMIL [Concomitant]
  8. XANAX [Concomitant]
  9. ZOLOFT [Concomitant]

REACTIONS (3)
  - ASTHMA [None]
  - FATIGUE [None]
  - NO THERAPEUTIC RESPONSE [None]
